FAERS Safety Report 5504001-1 (Version None)
Quarter: 2007Q4

REPORT INFORMATION
  Report Type: 
  Country: None (occurrence: None)
  Receive Date: 20071101
  Receipt Date: 20071023
  Transmission Date: 20080405
  Serious: Yes (Hospitalization)
  Sender: FDA-Public Use
  Company Number: FR-JNJFOC-20071005369

PATIENT
  Age: 61 Year
  Sex: Male
  Weight: 51 kg

DRUGS (9)
  1. DURAGESIC-100 [Suspect]
     Route: 062
  2. DURAGESIC-100 [Suspect]
     Route: 062
  3. DURAGESIC-100 [Suspect]
     Indication: SCIATICA
     Route: 062
  4. REVIA [Interacting]
     Indication: DRUG USE FOR UNKNOWN INDICATION
     Route: 048
  5. PYRIDOXINE [Concomitant]
     Indication: DRUG USE FOR UNKNOWN INDICATION
     Route: 065
  6. AOTAL [Concomitant]
     Indication: DRUG USE FOR UNKNOWN INDICATION
     Route: 048
  7. THIAMINE [Concomitant]
     Indication: DRUG USE FOR UNKNOWN INDICATION
     Route: 065
  8. NICOBION [Concomitant]
     Indication: DRUG USE FOR UNKNOWN INDICATION
     Route: 065
  9. TRIZIVIR [Concomitant]
     Indication: HIV INFECTION
     Route: 065

REACTIONS (6)
  - AGITATION [None]
  - DISORIENTATION [None]
  - DRUG INTERACTION [None]
  - HOT FLUSH [None]
  - MUSCLE SPASMS [None]
  - TREMOR [None]
